FAERS Safety Report 19145315 (Version 1)
Quarter: 2021Q2

REPORT INFORMATION
  Report Type: Spontaneous
  Country: US (occurrence: US)
  Receive Date: 20210416
  Receipt Date: 20210416
  Transmission Date: 20210717
  Serious: No
  Sender: FDA-Public Use
  Company Number: US-DRREDDYS-USA/USA/21/0133817

PATIENT
  Age: 18 Year
  Sex: Female
  Weight: 63.9 kg

DRUGS (2)
  1. HABITROL [Suspect]
     Active Substance: NICOTINE
     Indication: ELECTRONIC CIGARETTE USER
     Dosage: STEP 1
     Route: 062
  2. HABITROL [Suspect]
     Active Substance: NICOTINE
     Dosage: STEP 2
     Route: 062

REACTIONS (5)
  - Mental disorder [Unknown]
  - Product quality issue [Unknown]
  - Drug intolerance [Unknown]
  - Drug ineffective [Unknown]
  - Product use in unapproved indication [Unknown]
